FAERS Safety Report 5121702-8 (Version None)
Quarter: 2006Q4

REPORT INFORMATION
  Report Type: 
  Country: None (occurrence: None)
  Receive Date: 20061006
  Receipt Date: 20060928
  Transmission Date: 20070319
  Serious: Yes (Hospitalization)
  Sender: FDA-Public Use
  Company Number: FR-GLAXOSMITHKLINE-B0440834A

PATIENT
  Age: 58 Year
  Sex: Male
  Weight: 58 kg

DRUGS (12)
  1. ZOFRAN [Suspect]
     Route: 042
     Dates: end: 20060818
  2. ZOVIRAX [Suspect]
     Route: 065
     Dates: end: 20060818
  3. ACUPAN [Suspect]
     Route: 042
     Dates: end: 20060818
  4. ENDOXAN [Suspect]
     Indication: CENTRAL NERVOUS SYSTEM LYMPHOMA
     Dosage: 3.5G PER DAY
     Route: 042
     Dates: start: 20060806, end: 20060807
  5. NEXIUM [Suspect]
     Route: 042
  6. BUSULFAN [Suspect]
     Indication: CENTRAL NERVOUS SYSTEM LYMPHOMA
     Dosage: 132MG PER DAY
     Route: 042
     Dates: start: 20060804, end: 20060805
  7. THIOTEPA [Suspect]
     Indication: CENTRAL NERVOUS SYSTEM LYMPHOMA
     Dosage: 410MG PER DAY
     Route: 042
     Dates: start: 20060801, end: 20060803
  8. VANCOMYCIN [Suspect]
     Route: 065
  9. OFLOCET [Suspect]
     Route: 065
     Dates: end: 20060818
  10. TRIFLUCAN [Suspect]
     Route: 065
     Dates: end: 20060818
  11. MORPHINE [Suspect]
     Route: 065
     Dates: end: 20060818
  12. TAZOCILLINE [Concomitant]
     Route: 065
     Dates: end: 20060818

REACTIONS (7)
  - CANDIDIASIS [None]
  - GENERAL PHYSICAL HEALTH DETERIORATION [None]
  - HYPOXIA [None]
  - PNEUMONIA [None]
  - PULMONARY RADIATION INJURY [None]
  - PYREXIA [None]
  - RENAL DISORDER [None]
